FAERS Safety Report 5809847-8 (Version None)
Quarter: 2008Q3

REPORT INFORMATION
  Report Type: 
  Country: None (occurrence: None)
  Receive Date: 20080715
  Receipt Date: 20080710
  Transmission Date: 20090109
  Serious: Yes (Life-Threatening, Hospitalization)
  Sender: FDA-Public Use
  Company Number: CH-ASTRAZENECA-2008PK01493

PATIENT
  Age: 53 Year
  Sex: Female

DRUGS (10)
  1. SEROQUEL [Suspect]
     Indication: DEPRESSION
     Route: 048
  2. CITALOPRAM HYDROBROMIDE [Suspect]
     Indication: DEPRESSION
     Route: 048
  3. ZYPREXA [Suspect]
     Indication: DEPRESSION
     Route: 048
  4. LORAZEPAM [Suspect]
     Indication: DEPRESSION
     Route: 048
  5. DEPAKENE [Suspect]
     Route: 048
  6. CEFACAT [Suspect]
     Route: 048
  7. ALCOHOL [Suspect]
     Dates: start: 20080620
  8. ZURCAL [Concomitant]
     Route: 048
  9. IRFEN [Concomitant]
     Indication: ANALGESIC THERAPY
     Route: 048
  10. TRAMADOL HCL [Concomitant]
     Indication: ANALGESIC THERAPY
     Route: 048

REACTIONS (3)
  - ALCOHOL POISONING [None]
  - COMA [None]
  - SUICIDE ATTEMPT [None]
